FAERS Safety Report 5351974-6 (Version None)
Quarter: 2007Q2

REPORT INFORMATION
  Report Type: 
  Country: None (occurrence: None)
  Receive Date: 20070522
  Receipt Date: 20060523
  Transmission Date: 20071010
  Serious: Yes (Other)
  Sender: FDA-Public Use
  Company Number: 2006067576

PATIENT
  Sex: Male
  Weight: 88.905 kg

DRUGS (5)
  1. NICOTROL [Suspect]
     Dosage: 1 BOTTLE EVERY 2 DAYS, NASAL
     Route: 045
  2. ATORVASTATIN CALCIUM [Concomitant]
  3. CLOPIDOGREL BISULFATE [Concomitant]
  4. LISINOPRIL [Concomitant]
  5. CLONAZEPAM [Concomitant]

REACTIONS (3)
  - DEPENDENCE [None]
  - INCORRECT DOSE ADMINISTERED [None]
  - INCORRECT DRUG ADMINISTRATION DURATION [None]
